FAERS Safety Report 6740685-8 (Version None)
Quarter: 2010Q2

REPORT INFORMATION
  Report Type: 
  Country: None (occurrence: None)
  Receive Date: 20100525
  Receipt Date: 20100512
  Transmission Date: 20101027
  Serious: Yes (Other)
  Sender: FDA-Public Use
  Company Number: CA-GENENTECH-302045

PATIENT
  Sex: Female
  Weight: 154 kg

DRUGS (1)
  1. XOLAIR [Suspect]
     Indication: ASTHMA
     Dosage: 375 MG, Q2W
     Route: 058
     Dates: start: 20081107

REACTIONS (4)
  - BLOOD PRESSURE SYSTOLIC INCREASED [None]
  - INFLUENZA [None]
  - RHEUMATOID ARTHRITIS [None]
  - SINUSITIS [None]
